FAERS Safety Report 15147791 (Version 1)
Quarter: 2018Q3

REPORT INFORMATION
  Report Type: Spontaneous
  Country: ES (occurrence: ES)
  Receive Date: 20180716
  Receipt Date: 20180716
  Transmission Date: 20181010
  Serious: Yes (Hospitalization)
  Sender: FDA-Public Use
  Company Number: ES-TAKEDA-2018TUS021992

PATIENT
  Age: 29 Year
  Sex: Female

DRUGS (3)
  1. YODUK [Concomitant]
     Indication: PREGNANCY
     Dosage: 200 UG, QD
     Route: 048
     Dates: start: 201710, end: 201803
  2. ENTYVIO [Suspect]
     Active Substance: VEDOLIZUMAB
     Indication: CROHN^S DISEASE
     Dosage: 300 MG, UNK
     Route: 042
     Dates: start: 20170124, end: 20180206
  3. OPTOVITE B12 [Concomitant]
     Active Substance: CYANOCOBALAMIN
     Dosage: 100 UG, MONTHLY
     Route: 030
     Dates: start: 2016

REACTIONS (2)
  - Oligohydramnios [Not Recovered/Not Resolved]
  - Pregnancy [Unknown]

NARRATIVE: CASE EVENT DATE: 20180221
